FAERS Safety Report 6492375-7 (Version None)
Quarter: 2009Q4

REPORT INFORMATION
  Report Type: 
  Country: None (occurrence: None)
  Receive Date: 20091214
  Receipt Date: 20091211
  Transmission Date: 20100525
  Serious: Yes (Life-Threatening, Hospitalization)
  Sender: FDA-Public Use
  Company Number: IN-WYE-H12286609

PATIENT
  Sex: Male
  Weight: 73 kg

DRUGS (23)
  1. TEMSIROLIMUS [Suspect]
     Indication: METASTATIC RENAL CELL CARCINOMA
     Route: 042
     Dates: start: 20090807
  2. ACETAMINOPHEN [Concomitant]
     Indication: PYREXIA
     Route: 048
     Dates: start: 20091111, end: 20091121
  3. PANTOPRAZOLE [Concomitant]
     Indication: GASTRITIS PROPHYLAXIS
     Route: 048
     Dates: start: 20090824, end: 20091121
  4. PANTOPRAZOLE [Concomitant]
     Indication: VOMITING
     Route: 042
     Dates: start: 20091121
  5. BETADINE [Concomitant]
     Indication: DENTAL DISORDER PROPHYLAXIS
     Dosage: GARGLES 6 TIMES
     Route: 048
     Dates: start: 20091112, end: 20091121
  6. BETADINE [Concomitant]
     Dosage: GARLES 4-6 TIMES PER DAY
     Route: 048
     Dates: start: 20091130, end: 20091204
  7. GLIPIZIDE [Concomitant]
     Indication: DIABETES MELLITUS
     Route: 048
     Dates: start: 20091119, end: 20091121
  8. VOGLIBOSE [Concomitant]
     Indication: DIABETES MELLITUS
     Route: 048
     Dates: start: 20091119, end: 20091121
  9. MULTI-VITAMINS [Concomitant]
     Indication: NUTRITIONAL SUPPORT
     Dosage: 25 ^MGP^ OD
     Route: 048
     Dates: start: 20090910, end: 20091121
  10. AMLODIPINE [Concomitant]
     Indication: HYPERTENSION
     Route: 048
     Dates: start: 20091022, end: 20091121
  11. ONDANSETRON [Concomitant]
     Indication: VOMITING
     Route: 042
     Dates: start: 20091121, end: 20091203
  12. PARACETAMOL [Concomitant]
     Indication: PYREXIA
     Dosage: 1 AMP PRN
     Route: 042
     Dates: start: 20091121, end: 20091203
  13. ACTRAPID HUMAN [Concomitant]
     Indication: HYPERGLYCAEMIA
     Dosage: ACCORDING TO REQUIREMENT
     Route: 058
     Dates: start: 20091121, end: 20091208
  14. ALBUTEROL [Concomitant]
     Indication: PROPHYLAXIS
     Route: 050
     Dates: start: 20091203
  15. LEVOFLOXACIN [Concomitant]
     Indication: INFECTION
     Route: 042
     Dates: start: 20091203
  16. CEFEPIME [Concomitant]
     Indication: INFECTION
     Route: 042
     Dates: start: 20091203
  17. CLINDAMYCIN [Concomitant]
     Indication: INFECTION PROPHYLAXIS
     Route: 042
     Dates: start: 20091203
  18. CLINDAMYCIN [Concomitant]
     Route: 042
     Dates: start: 20091202, end: 20091203
  19. FLUCONAZOLE [Concomitant]
     Indication: INFECTION
     Route: 042
     Dates: start: 20091203
  20. ENTEROGERMINA [Concomitant]
     Indication: DIARRHOEA
     Route: 048
     Dates: start: 20091201
  21. ATORVASTATIN CALCIUM [Concomitant]
     Indication: HYPERCHOLESTEROLAEMIA
     Route: 048
     Dates: start: 20091202, end: 20091203
  22. ISOSORBIDE MONONITRATE [Concomitant]
     Indication: ANGINA PECTORIS
     Route: 048
     Dates: start: 20091201, end: 20091203
  23. BEVACIZUMAB [Suspect]
     Indication: METASTATIC RENAL CELL CARCINOMA
     Route: 042
     Dates: start: 20090807

REACTIONS (2)
  - COLITIS [None]
  - DYSPNOEA [None]
